FAERS Safety Report 4842284-1 (Version None)
Quarter: 2005Q4

REPORT INFORMATION
  Report Type: 
  Country: None (occurrence: None)
  Receive Date: 20051129
  Receipt Date: 20051118
  Transmission Date: 20060501
  Serious: Yes (Other)
  Sender: FDA-Public Use
  Company Number: 200514006GDS

PATIENT
  Age: 50 Year
  Sex: Male

DRUGS (1)
  1. AVELOX [Suspect]
     Dosage: 400 MG, QD,

REACTIONS (9)
  - CHILLS [None]
  - COUGH [None]
  - PRURITUS [None]
  - PYREXIA [None]
  - SWELLING [None]
  - SWELLING FACE [None]
  - TACHYCARDIA [None]
  - TRACHEITIS [None]
  - URTICARIA [None]
